FAERS Safety Report 8832034 (Version 1)
Quarter: 2012Q4

REPORT INFORMATION
  Report Type: 
  Country: US (occurrence: US)
  Receive Date: 20121009
  Receipt Date: 20121009
  Transmission Date: 20130627
  Serious: No
  Sender: FDA-Public Use
  Company Number: US-PFIZER INC-2012246564

PATIENT
  Age: 69 Year
  Sex: Female
  Weight: 62.59 kg

DRUGS (9)
  1. LIPITOR [Suspect]
     Indication: BLOOD CHOLESTEROL INCREASED
     Dosage: 10 mg, 1x/day
     Route: 048
     Dates: end: 201209
  2. LIPITOR [Suspect]
     Dosage: 10 mg, 1x/day
     Route: 048
     Dates: start: 201209, end: 2012
  3. ATORVASTATIN CALCIUM [Suspect]
     Indication: BLOOD CHOLESTEROL INCREASED
     Dosage: 10 mg, 1x/day
     Dates: start: 201209, end: 201209
  4. VITAMIN B COMPLEX [Concomitant]
     Dosage: UNK
  5. DIOVAN [Concomitant]
     Dosage: 80 mg, UNK
  6. PREMARIN [Concomitant]
     Dosage: 0.625 mg, UNK
  7. ACTONEL [Concomitant]
     Dosage: UNK
  8. CALCIUM [Concomitant]
     Dosage: UNK
  9. PRILOSEC [Concomitant]
     Dosage: UNK

REACTIONS (2)
  - Blood pressure increased [Recovered/Resolved]
  - Diarrhoea [Recovered/Resolved]
